FAERS Safety Report 7256230-7 (Version None)
Quarter: 2011Q1

REPORT INFORMATION
  Report Type: 
  Country: None (occurrence: None)
  Receive Date: 20110129
  Receipt Date: 20100504
  Transmission Date: 20110831
  Serious: No
  Sender: FDA-Public Use
  Company Number: US-ABBOTT-10P-163-0624691-00

PATIENT
  Sex: Male
  Weight: 65.83 kg

DRUGS (2)
  1. HUMIRA [Suspect]
     Indication: CROHN'S DISEASE
     Dosage: DAY 1
     Dates: start: 20091215, end: 20091229
  2. HUMIRA [Suspect]
     Dates: start: 20091229

REACTIONS (8)
  - SWELLING FACE [None]
  - FACIAL PAIN [None]
  - PSORIASIS [None]
  - ACNE [None]
  - NASOPHARYNGITIS [None]
  - PERSONALITY CHANGE [None]
  - STAPHYLOCOCCAL INFECTION [None]
  - WHITE BLOOD CELL COUNT INCREASED [None]
